FAERS Safety Report 12544377 (Version 1)
Quarter: 2016Q3

REPORT INFORMATION
  Report Type: Spontaneous
  Country: US (occurrence: US)
  Receive Date: 20160711
  Receipt Date: 20160711
  Transmission Date: 20161109
  Serious: No
  Sender: FDA-Public Use
  Company Number: US-PFIZER INC-2016300245

PATIENT
  Age: 74 Year
  Sex: Male
  Weight: 75.3 kg

DRUGS (1)
  1. SKELAXIN [Suspect]
     Active Substance: METAXALONE
     Indication: PAIN MANAGEMENT
     Dosage: UNK

REACTIONS (3)
  - Abdominal discomfort [Unknown]
  - Anal incontinence [Unknown]
  - Muscle disorder [Unknown]
